FAERS Safety Report 5485856-6 (Version None)
Quarter: 2007Q4

REPORT INFORMATION
  Report Type: 
  Country: None (occurrence: None)
  Receive Date: 20071015
  Receipt Date: 20071001
  Transmission Date: 20080405
  Serious: Yes (Hospitalization)
  Sender: FDA-Public Use
  Company Number: US-ELI_LILLY_AND_COMPANY-US200709006804

PATIENT
  Sex: Female

DRUGS (7)
  1. CYMBALTA [Suspect]
     Dosage: 60 MG, UNK
  2. BYETTA [Concomitant]
     Dosage: 5 UG, 2/D
     Dates: start: 20070814, end: 20070816
  3. SYNTHROID [Concomitant]
  4. METFORMIN [Concomitant]
     Dosage: 1 D/F, 2/D
  5. DOXYCYCLINE [Concomitant]
     Dosage: 100 MG, EACH EVENING
  6. ZOLOFT [Concomitant]
  7. ESTROTEST [Concomitant]

REACTIONS (1)
  - PANCREATITIS [None]
